FAERS Safety Report 14425409 (Version 1)
Quarter: 2018Q1

REPORT INFORMATION
  Report Type: Spontaneous
  Country: US (occurrence: US)
  Receive Date: 20180123
  Receipt Date: 20180123
  Transmission Date: 20180509
  Serious: No
  Sender: FDA-Public Use
  Company Number: US-PERRIGO-17US003047

PATIENT
  Age: 6 Year
  Sex: Female
  Weight: 18.14 kg

DRUGS (1)
  1. IBUPROFEN. [Suspect]
     Active Substance: IBUPROFEN
     Indication: PAIN
     Dosage: 100 MG, SINGLE
     Route: 048
     Dates: start: 20170317, end: 20170317

REACTIONS (3)
  - Peripheral coldness [Not Recovered/Not Resolved]
  - Cyanosis [Not Recovered/Not Resolved]
  - Incorrect dose administered [Recovered/Resolved]

NARRATIVE: CASE EVENT DATE: 20170317
